FAERS Safety Report 4266452-5 (Version None)
Quarter: 2004Q1

REPORT INFORMATION
  Report Type: 
  Country: None (occurrence: None)
  Receive Date: 20040108
  Receipt Date: 20031205
  Transmission Date: 20041129
  Serious: Yes (Other)
  Sender: FDA-Public Use
  Company Number: 200313723EU

PATIENT
  Age: 65 Year
  Sex: Female

DRUGS (11)
  1. ARAVA [Suspect]
     Indication: RHEUMATOID ARTHRITIS
     Route: 048
     Dates: end: 20031113
  2. ADALAT [Concomitant]
     Route: 048
  3. LOSEC I.V. [Concomitant]
     Route: 048
  4. IMOVANE [Concomitant]
     Route: 048
  5. ACETYLCYSTEINE [Concomitant]
     Route: 048
  6. PREDNISONE [Concomitant]
     Route: 048
  7. FUROSEMIDE [Concomitant]
     Route: 048
  8. NORVASC [Concomitant]
     Route: 048
  9. ALDACTONE [Concomitant]
     Route: 048
  10. SINTROM MITIS [Concomitant]
     Route: 048
  11. ACETAMINOPHEN [Concomitant]
     Route: 048

REACTIONS (3)
  - BONE DISORDER [None]
  - CONDITION AGGRAVATED [None]
  - RHEUMATOID ARTHRITIS [None]
